FAERS Safety Report 10472277 (Version 1)
Quarter: 2014Q3

REPORT INFORMATION
  Report Type: Spontaneous
  Country: US (occurrence: None)
  Receive Date: 20140923
  Receipt Date: 20140923
  Transmission Date: 20150326
  Serious: Yes (Hospitalization)
  Sender: FDA-Public Use
  Company Number: None

PATIENT
  Age: 11 Year
  Sex: Female
  Weight: 47.6 kg

DRUGS (3)
  1. ALOXI [Concomitant]
     Active Substance: PALONOSETRON HYDROCHLORIDE
  2. EMEND (FOSAPREPITANT DIMEGLUMINE) [Suspect]
     Active Substance: FOSAPREPITANT DIMEGLUMINE
     Dosage: ONCE ON 3 VISITS
     Route: 042
     Dates: start: 20140122, end: 20140226
  3. EMEND (FOSAPREPITANT DIMEGLUMINE) [Suspect]
     Active Substance: FOSAPREPITANT DIMEGLUMINE
     Indication: NAUSEA
     Dosage: ONCE ON 3 VISITS
     Route: 042
     Dates: start: 20140122, end: 20140226

REACTIONS (3)
  - Dyspnoea [None]
  - Cough [None]
  - Vomiting [None]

NARRATIVE: CASE EVENT DATE: 20140226
